FAERS Safety Report 18149695 (Version 1)
Quarter: 2020Q3

REPORT INFORMATION
  Report Type: Spontaneous
  Country: US (occurrence: US)
  Receive Date: 20200813
  Receipt Date: 20200813
  Transmission Date: 20201103
  Serious: Yes (Disabling)
  Sender: FDA-Public Use
  Company Number: None

PATIENT
  Age: 72 Year
  Sex: Female

DRUGS (3)
  1. PROPOFOL (I.V.) [Suspect]
     Active Substance: PROPOFOL
     Indication: SEDATION
     Dates: start: 20200331, end: 20200331
  2. MAGNESIUM OXIDE. [Concomitant]
     Active Substance: MAGNESIUM OXIDE
  3. COLON CLEANSE (DIETARY SUPPLEMENT) CAPSULE [Concomitant]
     Active Substance: DIETARY SUPPLEMENT

REACTIONS (9)
  - Oedema [None]
  - Rash [None]
  - Pain [None]
  - Skin tightness [None]
  - Musculoskeletal stiffness [None]
  - Fluid retention [None]
  - Swelling [None]
  - Vascular injury [None]
  - Sunburn [None]

NARRATIVE: CASE EVENT DATE: 20200331
